FAERS Safety Report 9339930 (Version 1)
Quarter: 2013Q2

REPORT INFORMATION
  Report Type: Spontaneous
  Country: US (occurrence: None)
  Receive Date: 20130607
  Receipt Date: 20130607
  Transmission Date: 20140414
  Serious: Yes (Hospitalization)
  Sender: FDA-Public Use
  Company Number: None

PATIENT
  Age: 59 Year
  Sex: Male
  Weight: 49.6 kg

DRUGS (1)
  1. PACLITAXEL [Suspect]
     Dosage: 280 MG ONCE IV
     Route: 042
     Dates: start: 20120626, end: 20120628

REACTIONS (2)
  - Dyspnoea [None]
  - Chest pain [None]
